FAERS Safety Report 5730475-7 (Version None)
Quarter: 2008Q2

REPORT INFORMATION
  Report Type: 
  Country: None (occurrence: None)
  Receive Date: 20080507
  Receipt Date: 20080425
  Transmission Date: 20081010
  Serious: Yes (Other)
  Sender: FDA-Public Use
  Company Number: US-JNJFOC-20080407021

PATIENT
  Age: 29 Year
  Sex: Male
  Weight: 141.52 kg

DRUGS (2)
  1. EXTRA STRENGTH TYLENOL [Suspect]
     Indication: INTENTIONAL DRUG MISUSE
     Dosage: UP TO APPROXIMATELY 30 CAPLETS A DAY
     Route: 048
  2. ADVIL PM [Suspect]
     Indication: DRUG USE FOR UNKNOWN INDICATION
     Dosage: UP TO 15 DOSES PER DAY

REACTIONS (4)
  - DRUG ABUSE [None]
  - DRUG ADMINISTRATION ERROR [None]
  - INCORRECT DRUG ADMINISTRATION DURATION [None]
  - MULTIPLE DRUG OVERDOSE INTENTIONAL [None]
